FAERS Safety Report 7809315-8 (Version None)
Quarter: 2011Q4

REPORT INFORMATION
  Report Type: 
  Country: None (occurrence: None)
  Receive Date: 20111006
  Receipt Date: 20110929
  Transmission Date: 20120403
  Serious: Yes (Other)
  Sender: FDA-Public Use
  Company Number: 2011SP046304

PATIENT
  Sex: Male

DRUGS (2)
  1. RIBAVIRIN [Suspect]
     Indication: HEPATITIS C
     Dates: start: 20110624, end: 20110916
  2. PEG-INTRON [Suspect]
     Indication: HEPATITIS C
     Dates: start: 20110624, end: 20110916

REACTIONS (4)
  - WEIGHT DECREASED [None]
  - NO THERAPEUTIC RESPONSE [None]
  - DECREASED APPETITE [None]
  - MUSCLE ATROPHY [None]
